FAERS Safety Report 15182207 (Version 1)
Quarter: 2018Q3

REPORT INFORMATION
  Report Type: Report from Study
  Country: JP (occurrence: JP)
  Receive Date: 20180723
  Receipt Date: 20180723
  Transmission Date: 20181010
  Serious: Yes (Death, Life-Threatening, Hospitalization, Other)
  Sender: FDA-Public Use
  Company Number: JP-ACTELION-A-CH2016-131206

PATIENT
  Age: 20 Year
  Sex: Male
  Weight: 54 kg

DRUGS (8)
  1. ADEMPAS [Concomitant]
     Active Substance: RIOCIGUAT
     Indication: PRODUCT USED FOR UNKNOWN INDICATION
     Dosage: UNK
  2. REMODULIN [Concomitant]
     Active Substance: TREPROSTINIL
     Dosage: 28.14 NG/KG, PER MIN
     Route: 042
     Dates: start: 20160204
  3. OXYGEN. [Concomitant]
     Active Substance: OXYGEN
     Indication: PRODUCT USED FOR UNKNOWN INDICATION
  4. OPSUMIT [Suspect]
     Active Substance: MACITENTAN
     Indication: PULMONARY ARTERIAL HYPERTENSION
     Dosage: 10 MG, OD
     Route: 048
     Dates: start: 20150715, end: 20161019
  5. TAKEPRON [Concomitant]
     Active Substance: LANSOPRAZOLE
     Indication: PRODUCT USED FOR UNKNOWN INDICATION
  6. NEXIUM [Concomitant]
     Active Substance: ESOMEPRAZOLE MAGNESIUM
  7. FLOLAN [Suspect]
     Active Substance: EPOPROSTENOL SODIUM
     Indication: PULMONARY ARTERIAL HYPERTENSION
     Dosage: 50 NG/KG, BID
     Route: 042
     Dates: start: 20150709, end: 20160209
  8. NAUZELIN [Concomitant]
     Active Substance: DOMPERIDONE
     Indication: PRODUCT USED FOR UNKNOWN INDICATION

REACTIONS (29)
  - Sepsis [Fatal]
  - Concomitant disease aggravated [Recovering/Resolving]
  - Diarrhoea [Recovered/Resolved]
  - Epistaxis [Recovered/Resolved with Sequelae]
  - Platelet count decreased [Not Recovered/Not Resolved]
  - Circulatory collapse [Fatal]
  - Pulmonary hypertension [Fatal]
  - Pneumonia [Not Recovered/Not Resolved]
  - Thrombocytopenia [Not Recovered/Not Resolved]
  - Hypoalbuminaemia [Not Recovered/Not Resolved]
  - C-reactive protein increased [Not Recovered/Not Resolved]
  - Oxygen saturation decreased [Fatal]
  - Bacterial infection [Recovered/Resolved]
  - Bronchitis [Not Recovered/Not Resolved]
  - Right ventricular failure [Fatal]
  - Acute kidney injury [Not Recovered/Not Resolved]
  - Catheter removal [Unknown]
  - Haemoptysis [Recovered/Resolved with Sequelae]
  - Pulmonary alveolar haemorrhage [Recovered/Resolved with Sequelae]
  - Multiple organ dysfunction syndrome [Fatal]
  - Blood culture positive [Not Recovered/Not Resolved]
  - Pyrexia [Not Recovered/Not Resolved]
  - Blood pressure decreased [Fatal]
  - Pain in extremity [Recovering/Resolving]
  - Hypoxia [Not Recovered/Not Resolved]
  - Platelet transfusion [Unknown]
  - Respiratory failure [Not Recovered/Not Resolved]
  - White blood cell count increased [Not Recovered/Not Resolved]
  - Catheter site infection [Recovered/Resolved]

NARRATIVE: CASE EVENT DATE: 20150813
